FAERS Safety Report 24417971 (Version 1)
Quarter: 2024Q4

REPORT INFORMATION
  Report Type: Spontaneous
  Country: LV (occurrence: LV)
  Receive Date: 20241009
  Receipt Date: 20241009
  Transmission Date: 20250115
  Serious: Yes (Hospitalization, Other)
  Sender: ABBVIE
  Company Number: None

PATIENT
  Sex: Male

DRUGS (1)
  1. IMBRUVICA [Suspect]
     Active Substance: IBRUTINIB
     Indication: Chronic lymphocytic leukaemia
     Route: 048
     Dates: start: 20221104, end: 20240705

REACTIONS (3)
  - Haematoma [Recovering/Resolving]
  - Coagulation time prolonged [Recovering/Resolving]
  - Platelet disorder [Recovering/Resolving]

NARRATIVE: CASE EVENT DATE: 20240705
